FAERS Safety Report 17140489 (Version 1)
Quarter: 2019Q4

REPORT INFORMATION
  Report Type: Spontaneous
  Country: US (occurrence: US)
  Receive Date: 20191211
  Receipt Date: 20191211
  Transmission Date: 20200122
  Serious: No
  Sender: FDA-Public Use
  Company Number: US-UCBSA-2016009168

PATIENT
  Age: 22 Year
  Sex: Female
  Weight: 62 kg

DRUGS (5)
  1. CIMZIA [Suspect]
     Active Substance: CERTOLIZUMAB PEGOL
     Indication: OFF LABEL USE
  2. XARELTO [Concomitant]
     Active Substance: RIVAROXABAN
     Indication: COLITIS ULCERATIVE
     Dosage: 15 MG, ONCE DAILY (QD)
     Route: 048
  3. IMURAN [Concomitant]
     Active Substance: AZATHIOPRINE
     Indication: COLITIS ULCERATIVE
     Dosage: 100 MG, ONCE DAILY (QD)
     Route: 048
     Dates: start: 20150707
  4. ASACOL HD [Concomitant]
     Active Substance: MESALAMINE
     Indication: COLITIS ULCERATIVE
     Dosage: 2400 MG, ONCE DAILY (QD)
     Route: 048
     Dates: start: 20150707
  5. CIMZIA [Suspect]
     Active Substance: CERTOLIZUMAB PEGOL
     Indication: COLITIS ULCERATIVE
     Dosage: 400 MG, EV 4 WEEKS/STRENGTH: 400 MG
     Route: 058
     Dates: start: 20150616

REACTIONS (2)
  - Skin discolouration [Recovering/Resolving]
  - Off label use [Unknown]

NARRATIVE: CASE EVENT DATE: 20150616
